FAERS Safety Report 9699304 (Version 1)
Quarter: 2013Q4

REPORT INFORMATION
  Report Type: Spontaneous
  Country: US (occurrence: US)
  Receive Date: 20131120
  Receipt Date: 20131120
  Transmission Date: 20140711
  Serious: No
  Sender: FDA-Public Use
  Company Number: US-GILEAD-2008-0015541

PATIENT
  Sex: Female
  Weight: 65.77 kg

DRUGS (9)
  1. LETAIRIS [Suspect]
     Indication: PULMONARY ARTERIAL HYPERTENSION
     Route: 048
     Dates: start: 20070813
  2. LASIX [Concomitant]
     Route: 048
  3. COUMADIN [Concomitant]
     Route: 048
  4. NIFEDIPINE [Concomitant]
     Route: 048
  5. SPIRONOLACTONE [Concomitant]
     Route: 048
  6. POTASSIUM CHLORIDE [Concomitant]
     Route: 048
  7. ZAROXOLYN [Concomitant]
     Route: 048
  8. HUMALOG [Concomitant]
     Route: 058
  9. LANTUS [Concomitant]
     Route: 058

REACTIONS (1)
  - Insomnia [None]
